FAERS Safety Report 20634725 (Version 3)
Quarter: 2022Q1

REPORT INFORMATION
  Report Type: Spontaneous
  Country: PT (occurrence: PT)
  Receive Date: 20220325
  Receipt Date: 20220331
  Transmission Date: 20220424
  Serious: Yes (Hospitalization, Congenital Anomaly, Other)
  Sender: FDA-Public Use
  Company Number: PT-NOVARTISPH-NVSC2022PT066655

PATIENT
  Sex: Female

DRUGS (1)
  1. LEVETIRACETAM [Suspect]
     Active Substance: LEVETIRACETAM
     Indication: Foetal exposure during pregnancy
     Dosage: MATERNAL DOSE: UNK
     Route: 064

REACTIONS (2)
  - Congenital knee dislocation [Recovering/Resolving]
  - Foetal exposure during pregnancy [Unknown]
